FAERS Safety Report 6439215-X (Version None)
Quarter: 2009Q4

REPORT INFORMATION
  Report Type: 
  Country: None (occurrence: None)
  Receive Date: 20091113
  Receipt Date: 20091104
  Transmission Date: 20100525
  Serious: Yes (Hospitalization)
  Sender: FDA-Public Use
  Company Number: CH-NAPPMUNDI-DEU-2009-0005675

PATIENT
  Age: 80 Year
  Sex: Male

DRUGS (6)
  1. MS CONTIN [Suspect]
     Indication: BACK PAIN
     Dosage: 10 MG, DAILY
     Route: 048
     Dates: start: 20090818, end: 20090821
  2. VOLTAREN [Suspect]
     Indication: BACK PAIN
     Dosage: 100 MG, DAILY
     Route: 048
     Dates: start: 20090818, end: 20090821
  3. CIPRALEX                           /01588501/ [Concomitant]
  4. ASPIRIN [Concomitant]
  5. DILATREND [Concomitant]
  6. AMLODIPIN                          /00972401/ [Concomitant]

REACTIONS (2)
  - RENAL FAILURE CHRONIC [None]
  - SOMNOLENCE [None]
